FAERS Safety Report 26130496 (Version 1)
Quarter: 2025Q4

REPORT INFORMATION
  Report Type: Report from Study
  Country: IN (occurrence: IN)
  Receive Date: 20251208
  Receipt Date: 20251208
  Transmission Date: 20260118
  Serious: Yes (Hospitalization)
  Sender: DAIICHI
  Company Number: IN-AstraZeneca-CH-01004996A

PATIENT
  Age: 57 Year
  Sex: Female
  Weight: 60 kg

DRUGS (1)
  1. ENHERTU [Suspect]
     Active Substance: FAM-TRASTUZUMAB DERUXTECAN-NXKI
     Indication: Targeted cancer therapy
     Dosage: UNK
     Route: 042
     Dates: start: 20250301

REACTIONS (3)
  - Blood potassium decreased [Unknown]
  - Blood calcium decreased [Unknown]
  - Cough [Unknown]
